FAERS Safety Report 16792005 (Version 3)
Quarter: 2019Q3

REPORT INFORMATION
  Report Type: Spontaneous
  Country: BE (occurrence: BE)
  Receive Date: 20190910
  Receipt Date: 20190926
  Transmission Date: 20191005
  Serious: Yes (Death, Other)
  Sender: FDA-Public Use
  Company Number: BE-MYLANLABS-2019M1084337

PATIENT
  Age: 39 Year
  Sex: Male

DRUGS (4)
  1. AMPHOTERICIN-B [Interacting]
     Active Substance: AMPHOTERICIN B
     Indication: ASPERGILLUS INFECTION
     Dosage: UNK
     Route: 065
  2. AMPHOTERICIN-B [Interacting]
     Active Substance: AMPHOTERICIN B
     Indication: PNEUMOCYSTIS JIROVECII INFECTION
     Dosage: UNK
     Route: 065
  3. VORICONAZOLE. [Interacting]
     Active Substance: VORICONAZOLE
     Indication: ASPERGILLUS INFECTION
     Dosage: UNK
     Route: 065
  4. VORICONAZOLE. [Suspect]
     Active Substance: VORICONAZOLE
     Indication: PNEUMOCYSTIS JIROVECII INFECTION
     Dosage: UNK
     Route: 065

REACTIONS (9)
  - Respiratory failure [Unknown]
  - Lung infection [Unknown]
  - Drug ineffective [Fatal]
  - Sepsis [Fatal]
  - Haemolysis [Unknown]
  - Thrombocytopenia [Unknown]
  - Drug interaction [Unknown]
  - Inhibitory drug interaction [Fatal]
  - Renal failure [Unknown]
